FAERS Safety Report 5599807-7 (Version None)
Quarter: 2008Q1

REPORT INFORMATION
  Report Type: 
  Country: None (occurrence: None)
  Receive Date: 20080118
  Receipt Date: 20080118
  Transmission Date: 20080703
  Serious: Yes (Other)
  Sender: FDA-Public Use
  Company Number: None

PATIENT
  Age: 48 Year
  Sex: Female
  Weight: 58.9676 kg

DRUGS (2)
  1. FOSAMAX [Suspect]
     Indication: OSTEOPENIA
     Dates: start: 20060201, end: 20060701
  2. FOSAMAX [Suspect]
     Indication: OSTEOPENIA
     Dates: start: 20070101, end: 20070701

REACTIONS (2)
  - ARTHRALGIA [None]
  - GAIT DISTURBANCE [None]
